FAERS Safety Report 6424695-6 (Version None)
Quarter: 2009Q4

REPORT INFORMATION
  Report Type: 
  Country: None (occurrence: None)
  Receive Date: 20091103
  Receipt Date: 20091014
  Transmission Date: 20100525
  Serious: Yes (Other)
  Sender: FDA-Public Use
  Company Number: PHEH2009US13754

PATIENT
  Sex: Female

DRUGS (3)
  1. ZELNORM [Suspect]
     Dosage: UNK
  2. AMITIZA [Suspect]
  3. MIRALAX [Concomitant]

REACTIONS (2)
  - EATING DISORDER SYMPTOM [None]
  - PAIN [None]
